FAERS Safety Report 11696342 (Version 1)
Quarter: 2015Q4

REPORT INFORMATION
  Report Type: Report from Study
  Country: US (occurrence: US)
  Receive Date: 20151104
  Receipt Date: 20151104
  Transmission Date: 20160304
  Serious: Yes (Hospitalization, Other)
  Sender: FDA-Public Use
  Company Number: US-MYLANLABS-2015M1037556

PATIENT

DRUGS (24)
  1. FLEXERIL [Concomitant]
     Active Substance: CYCLOBENZAPRINE HYDROCHLORIDE
     Dosage: UNK
  2. LYRICA [Concomitant]
     Active Substance: PREGABALIN
     Dosage: UNK
  3. TRIAMCINOLONE [Concomitant]
     Active Substance: TRIAMCINOLONE
     Dosage: UNK
  4. ZEGERID                            /00661201/ [Concomitant]
     Active Substance: OMEPRAZOLE
     Dosage: UNK
  5. BENICAR HCT [Concomitant]
     Active Substance: HYDROCHLOROTHIAZIDE\OLMESARTAN MEDOXOMIL
     Dosage: UNK
  6. BUSPIRONE [Concomitant]
     Active Substance: BUSPIRONE HYDROCHLORIDE
     Dosage: UNK
  7. CARAFATE [Concomitant]
     Active Substance: SUCRALFATE
     Dosage: UNK
  8. LASIX [Concomitant]
     Active Substance: FUROSEMIDE
     Dosage: UNK
  9. TESSALON [Concomitant]
     Active Substance: BENZONATATE
     Dosage: UNK
  10. VALIUM [Concomitant]
     Active Substance: DIAZEPAM
     Dosage: UNK
  11. BARBITURATES AND DERIVATIVES [Concomitant]
     Active Substance: UNSPECIFIED INGREDIENT
     Dosage: UNK
  12. PROZAC [Concomitant]
     Active Substance: FLUOXETINE HYDROCHLORIDE
     Dosage: UNK
  13. INVESTIGATIONAL DRUG [Suspect]
     Active Substance: INVESTIGATIONAL PRODUCT
     Indication: RHEUMATOID ARTHRITIS
     Dosage: 100 MG, QD
     Route: 048
     Dates: start: 20130422, end: 20130718
  14. BAYER ASPIRIN [Concomitant]
     Active Substance: ASPIRIN
     Dosage: UNK
  15. NAPROSYN [Concomitant]
     Active Substance: NAPROXEN
     Dosage: UNK
  16. PREMARIN [Concomitant]
     Active Substance: ESTROGENS, CONJUGATED
     Dosage: UNK
  17. AMITIZA [Concomitant]
     Active Substance: LUBIPROSTONE
     Dosage: UNK
  18. DOXEPIN [Suspect]
     Active Substance: DOXEPIN
     Dosage: 50 MG, HS
     Route: 048
  19. DOXEPIN [Suspect]
     Active Substance: DOXEPIN
     Indication: DEPRESSION
     Dosage: 950MG TOTAL DOSE
     Route: 048
     Dates: start: 20130719, end: 20130719
  20. INVESTIGATIONAL DRUG [Suspect]
     Active Substance: INVESTIGATIONAL PRODUCT
     Dosage: 100 MG, QD
     Route: 048
     Dates: start: 20130722
  21. ABILIFY [Concomitant]
     Active Substance: ARIPIPRAZOLE
     Dosage: UNK
  22. COLACE [Concomitant]
     Active Substance: DOCUSATE SODIUM
     Dosage: UNK
  23. DILANTIN [Concomitant]
     Active Substance: PHENYTOIN
     Dosage: UNK
  24. KEPPRA [Concomitant]
     Active Substance: LEVETIRACETAM
     Dosage: UNK

REACTIONS (2)
  - Acute kidney injury [Recovered/Resolved]
  - Intentional overdose [Recovered/Resolved]

NARRATIVE: CASE EVENT DATE: 20130719
